FAERS Safety Report 10133411 (Version 4)
Quarter: 2014Q2

REPORT INFORMATION
  Report Type: Spontaneous
  Country: US (occurrence: US)
  Receive Date: 20140428
  Receipt Date: 20140612
  Transmission Date: 20141212
  Serious: No
  Sender: FDA-Public Use
  Company Number: US-PFIZER INC-2014116573

PATIENT
  Sex: Female

DRUGS (3)
  1. ZOLOFT [Suspect]
     Dosage: UNK
     Dates: end: 2014
  2. SERTRALINE HYDROCHLORIDE [Suspect]
     Dosage: 75 MG, UNK
  3. SERTRALINE HYDROCHLORIDE [Suspect]
     Dosage: 100 MG, UNK
     Dates: end: 2014

REACTIONS (10)
  - Tremor [Not Recovered/Not Resolved]
  - Dyskinesia [Not Recovered/Not Resolved]
  - Panic attack [Unknown]
  - Anxiety [Unknown]
  - Malaise [Unknown]
  - Nervousness [Unknown]
  - Activities of daily living impaired [Unknown]
  - Tinnitus [Unknown]
  - Drug ineffective [Unknown]
  - Paraesthesia [Not Recovered/Not Resolved]
